FAERS Safety Report 6904376-2 (Version None)
Quarter: 2010Q3

REPORT INFORMATION
  Report Type: 
  Country: None (occurrence: None)
  Receive Date: 20100804
  Receipt Date: 20090507
  Transmission Date: 20110219
  Serious: No
  Sender: FDA-Public Use
  Company Number: US-PFIZER INC-2009210820

PATIENT
  Sex: Female

DRUGS (1)
  1. LYRICA [Suspect]
     Indication: OSTEOARTHRITIS
     Dates: end: 20090501

REACTIONS (2)
  - INSOMNIA [None]
  - URTICARIA [None]
